FAERS Safety Report 8759667 (Version 2)
Quarter: 2012Q4

REPORT INFORMATION
  Report Type: 
  Country: JP (occurrence: JP)
  Receive Date: 20120829
  Receipt Date: 20120928
  Transmission Date: 20130627
  Serious: Yes (Other)
  Sender: FDA-Public Use
  Company Number: JP-009507513-1208JPN010495

PATIENT
  Age: 80 Year
  Sex: Female

DRUGS (4)
  1. GASTER [Suspect]
     Dosage: 20 mg, qd,UID
     Route: 048
  2. SEROQUEL [Suspect]
     Indication: SCHIZOPHRENIA
     Dosage: 25 mg, tid
     Route: 048
  3. SEROQUEL [Suspect]
     Dosage: 25 mg, qd
     Route: 048
  4. RISPERIDONE [Suspect]
     Dosage: 3 mg, qd
     Route: 048

REACTIONS (2)
  - Electrocardiogram QT prolonged [Recovering/Resolving]
  - Hypokalaemia [Recovering/Resolving]
